FAERS Safety Report 8192924-7 (Version None)
Quarter: 2012Q1

REPORT INFORMATION
  Report Type: 
  Country: None (occurrence: None)
  Receive Date: 20120308
  Receipt Date: 20120306
  Transmission Date: 20120608
  Serious: Yes (Hospitalization)
  Sender: FDA-Public Use
  Company Number: US-BAYER-2011-078750

PATIENT
  Age: 59 Year
  Sex: Male
  Weight: 81.633 kg

DRUGS (37)
  1. HYDROMORPHONE HCL [Concomitant]
     Dosage: 4 MG/H, UNK
     Dates: start: 20110609
  2. METOCLOPRAMIDE [Concomitant]
     Dosage: UNK
     Dates: start: 20110524
  3. ACETAMINOPHEN AND HYDROCODONE BITARTRATE [Concomitant]
     Dosage: UNK
     Dates: start: 20110321
  4. OXYCONTIN [Concomitant]
     Dosage: 20 MG, BID
     Route: 048
  5. VALIUM [Concomitant]
     Indication: ANXIETY
     Dosage: 5 MG, BID
     Route: 048
  6. VANCOMYCIN [Concomitant]
     Dosage: 125 MG, QID
     Route: 048
  7. GENERLAC [Concomitant]
     Dosage: UNK
     Dates: start: 20110809
  8. PANTOPRAZOLE [Concomitant]
     Dosage: UNK
     Dates: start: 20110623
  9. MAGNESIUM OXIDE [Concomitant]
     Indication: SWELLING
     Dosage: 400 MG, BID
     Route: 048
  10. HYDROMORPHONE HCL [Concomitant]
     Dosage: UNK
     Dates: start: 20110621
  11. LIDODERM [Concomitant]
     Dosage: 1 PATCH 12 HOURS ON AND 12 HOURS OFF
     Route: 061
  12. PROPRANOLOL [Concomitant]
     Dosage: 10 MG, TID
     Route: 048
  13. PROTONIX [Concomitant]
     Dosage: 40 MG, BID
     Route: 048
  14. OXYCODONE HCL [Concomitant]
     Dosage: UNK
     Dates: start: 20110823
  15. FUROSEMIDE [Concomitant]
     Dosage: 40 MG, PRN
     Route: 048
  16. NICOTINE [Concomitant]
     Dosage: UNK
     Dates: start: 20110524
  17. METOCLOPRAM [Concomitant]
     Dosage: 10 MG, QD
     Dates: start: 20110609
  18. ATIVAN [Concomitant]
     Indication: INSOMNIA
     Dosage: 1-2 TABLETS QHS PRN
     Route: 048
  19. MULTIPLE VITAMINS [Concomitant]
     Dosage: 1 DF, QD
     Route: 048
  20. ROBAXIN [Concomitant]
  21. LORAZEPAM [Concomitant]
     Dosage: UNK
     Dates: start: 20110809
  22. GENERLAC [Concomitant]
     Dosage: UNK, QD
     Dates: start: 20110609
  23. SPIRONOLACTONE [Concomitant]
     Dosage: UNK
     Dates: start: 20110809
  24. METHADON HCL TAB [Concomitant]
     Dosage: UNK
     Dates: start: 20110712
  25. NICOTINE [Concomitant]
     Dosage: UNK
     Dates: start: 20110706
  26. NICOTINE [Concomitant]
     Dosage: PATCH 21 MG/24 HR
     Route: 061
  27. FUROSEMIDE [Concomitant]
     Indication: SWELLING
     Dosage: UNK
     Dates: start: 20110809
  28. SPIRONOLACTONE [Concomitant]
     Dosage: 100 MG, QD
     Route: 048
  29. MIRTAZAPINE [Concomitant]
     Dosage: 30 MG, QD
  30. CENTRUM [Concomitant]
     Dosage: UNK UNK, QD
     Dates: start: 20110609
  31. ACETAMINOPHEN AND HYDROCODONE BITARTRATE [Concomitant]
     Dosage: UNK, HS
  32. OXYCODONE HYDROCHLORIDE [Concomitant]
     Dosage: UNK UNK, PRN
     Route: 048
  33. NEXAVAR [Suspect]
     Indication: HEPATIC NEOPLASM MALIGNANT
     Dosage: 400 MG, BID
     Route: 048
     Dates: start: 20100804, end: 20110501
  34. NEXAVAR [Suspect]
     Dosage: 200 MG, BID
     Route: 048
     Dates: start: 20110728
  35. MIRTAZAPINE [Concomitant]
     Dosage: UNK
     Dates: start: 20110615
  36. ALPRAZOLAM [Concomitant]
     Dosage: 0.25 MG, QD
     Dates: start: 20110809
  37. NEURONTIN [Concomitant]
     Dosage: 1 DF, UNK
     Route: 048

REACTIONS (6)
  - DIARRHOEA [None]
  - PALMAR-PLANTAR ERYTHRODYSAESTHESIA SYNDROME [None]
  - BLOOD MAGNESIUM DECREASED [None]
  - BLOOD SODIUM DECREASED [None]
  - MUSCLE SPASMS [None]
  - FATIGUE [None]
